FAERS Safety Report 7611629-1 (Version None)
Quarter: 2011Q3

REPORT INFORMATION
  Report Type: 
  Country: None (occurrence: None)
  Receive Date: 20110715
  Receipt Date: 20110707
  Transmission Date: 20111222
  Serious: Yes (Other)
  Sender: FDA-Public Use
  Company Number: GB-B.I. PHARMACEUTICALS,INC./RIDGEFIELD-2010-UK-00839UK

PATIENT
  Sex: Female
  Weight: 53.6 kg

DRUGS (9)
  1. ACETAMINOPHEN [Concomitant]
     Indication: POSTOPERATIVE ANALGESIA
     Dosage: 4 G
     Route: 048
     Dates: start: 20100726, end: 20100802
  2. PHENOXYMETHYLPENICILIN [Concomitant]
     Indication: SICKLE CELL ANAEMIA
     Dosage: 500 MG
     Route: 048
     Dates: start: 20100726, end: 20100802
  3. FOLIC ACID [Concomitant]
     Indication: SICKLE CELL ANAEMIA
     Dosage: 5 MG
     Route: 048
     Dates: start: 20100726, end: 20100828
  4. VANCOMYCIN [Concomitant]
     Indication: SICKLE CELL ANAEMIA
     Dosage: 2 G
     Route: 042
     Dates: start: 20100726, end: 20100828
  5. CEFTAZIDIME [Concomitant]
     Indication: SICKLE CELL ANAEMIA
     Dosage: 3 G
     Route: 042
     Dates: start: 20100726, end: 20100828
  6. DOXYCYCLIN [Concomitant]
     Indication: POST PROCEDURAL HAEMATOMA
     Dosage: 100 MG
     Route: 048
     Dates: start: 20100729, end: 20100801
  7. CO-AMOXICLAX [Concomitant]
     Indication: POST PROCEDURAL HAEMATOMA
     Dosage: 625 BD IV
     Route: 015
     Dates: start: 20100728, end: 20100802
  8. DABIGATRAN [Suspect]
     Indication: SURGERY
     Dosage: 110 MG
     Route: 048
     Dates: start: 20100726, end: 20100726
  9. OXYCONTIN [Concomitant]
     Indication: POSTOPERATIVE ANALGESIA
     Dosage: 30 MG
     Route: 048
     Dates: start: 20100728, end: 20100802

REACTIONS (3)
  - MEDICATION ERROR [None]
  - SENSORY LOSS [None]
  - WOUND SECRETION [None]
